FAERS Safety Report 21580370 (Version 1)
Quarter: 2022Q4

REPORT INFORMATION
  Report Type: Other
  Country: CA (occurrence: CA)
  Receive Date: 20221110
  Receipt Date: 20221110
  Transmission Date: 20230113
  Serious: Yes (Other)
  Sender: FDA-Public Use
  Company Number: CA-CELLTRION INC.-2022CA018524

PATIENT

DRUGS (1)
  1. RITUXIMAB [Suspect]
     Active Substance: RITUXIMAB
     Indication: Product used for unknown indication
     Dosage: 1000 MILLIGRAM
     Route: 042

REACTIONS (5)
  - Blood pressure increased [Unknown]
  - Chest pain [Unknown]
  - Dermatitis bullous [Unknown]
  - Dyspnoea [Unknown]
  - Pruritus [Unknown]
